FAERS Safety Report 6424155-2 (Version None)
Quarter: 2009Q4

REPORT INFORMATION
  Report Type: 
  Country: None (occurrence: None)
  Receive Date: 20091029
  Receipt Date: 20091015
  Transmission Date: 20100525
  Serious: Yes (Hospitalization)
  Sender: FDA-Public Use
  Company Number: 2009AL006700

PATIENT
  Age: 56 Year
  Sex: Male

DRUGS (2)
  1. FLUDARABINE PHOSPHATE [Suspect]
     Indication: CHRONIC LYMPHOCYTIC LEUKAEMIA
     Dosage: 50 MG; PO
     Route: 048
     Dates: start: 20061127, end: 20070425
  2. CYCLOPHOSPHAMIDE [Concomitant]

REACTIONS (4)
  - MOUTH ULCERATION [None]
  - MUCOSAL INFLAMMATION [None]
  - PHARYNGEAL ULCERATION [None]
  - WEIGHT DECREASED [None]
